FAERS Safety Report 20620126 (Version 1)
Quarter: 2022Q1

REPORT INFORMATION
  Report Type: Spontaneous
  Country: FR (occurrence: FR)
  Receive Date: 20220322
  Receipt Date: 20220322
  Transmission Date: 20220423
  Serious: Yes (Life-Threatening)
  Sender: FDA-Public Use
  Company Number: None

PATIENT
  Age: 80 Year
  Sex: Female
  Weight: 88 kg

DRUGS (5)
  1. ISONIAZID\RIFAMPIN [Suspect]
     Active Substance: ISONIAZID\RIFAMPIN
     Indication: Latent tuberculosis
     Dosage: 1 TABLET TWICE A DAY
     Route: 048
     Dates: start: 20210505, end: 20210617
  2. SORIATANE [Suspect]
     Active Substance: ACITRETIN
     Indication: Psoriasis
     Dosage: 15 MG, QD
     Route: 048
     Dates: start: 20210529, end: 20210612
  3. BISOPROLOL CT [Concomitant]
  4. FLECAINIDE [Concomitant]
     Active Substance: FLECAINIDE
  5. LUCENTIS [Concomitant]
     Active Substance: RANIBIZUMAB

REACTIONS (1)
  - Hepatic failure [Recovered/Resolved]
